FAERS Safety Report 10155045 (Version 1)
Quarter: 2014Q2

REPORT INFORMATION
  Report Type: Spontaneous
  Country: FR (occurrence: FR)
  Receive Date: 20140506
  Receipt Date: 20140506
  Transmission Date: 20141212
  Serious: Yes (Hospitalization, Other)
  Sender: FDA-Public Use
  Company Number: FR-PFIZER INC-2014120848

PATIENT
  Age: 78 Year
  Sex: Female

DRUGS (6)
  1. TRIATEC [Suspect]
     Indication: MICROALBUMINURIA
     Dosage: UNK
     Route: 048
     Dates: start: 2006, end: 20140226
  2. NOVONORM [Interacting]
     Indication: DIABETES MELLITUS
     Dosage: UNK
     Route: 048
  3. PRAVASTATIN SODIUM [Concomitant]
     Indication: HYPERCHOLESTEROLAEMIA
     Dosage: UNK
  4. OROCAL [Concomitant]
     Dosage: UNK
  5. DEXERYL [Concomitant]
     Dosage: UNK
  6. AMOXICILLINE [Concomitant]
     Indication: LUNG DISORDER
     Dosage: UNK

REACTIONS (7)
  - Angioedema [Recovering/Resolving]
  - Lip swelling [Recovering/Resolving]
  - Lip swelling [Recovering/Resolving]
  - Drug interaction [Recovering/Resolving]
  - C-reactive protein increased [Unknown]
  - Gamma-glutamyltransferase increased [Unknown]
  - Creatinine renal clearance decreased [Unknown]
